FAERS Safety Report 9463748 (Version 5)
Quarter: 2014Q4

REPORT INFORMATION
  Report Type: Spontaneous
  Country: US (occurrence: US)
  Receive Date: 20130819
  Receipt Date: 20141117
  Transmission Date: 20150529
  Serious: Yes (Hospitalization, Other)
  Sender: FDA-Public Use
  Company Number: US-BAYER-2013-099505

PATIENT
  Age: 30 Year
  Sex: Female
  Weight: 95 kg

DRUGS (8)
  1. BETAMETHASONE [Concomitant]
     Active Substance: BETAMETHASONE
     Indication: PSORIASIS
     Dosage: UNK
     Dates: start: 2010
  2. PRENATAL VITAMINS [Concomitant]
     Active Substance: VITAMINS
  3. KEFLEX [Concomitant]
     Active Substance: CEPHALEXIN
  4. FERROUS SULFATE [Concomitant]
     Active Substance: FERROUS SULFATE\FERROUS SULFATE, DRIED
     Indication: BLOOD IRON DECREASED
     Dosage: UNK
     Dates: start: 2011
  5. ASPIRIN. [Concomitant]
     Active Substance: ASPIRIN
  6. IBUPROFEN. [Concomitant]
     Active Substance: IBUPROFEN
     Indication: MIGRAINE
     Dosage: UNK
     Dates: start: 2010
  7. MIRENA [Suspect]
     Active Substance: LEVONORGESTREL
     Indication: CONTRACEPTION
     Dosage: 20 MCG/24HR, CONT
     Route: 015
     Dates: start: 20110504, end: 20110815
  8. ZOFRAN [Concomitant]
     Active Substance: ONDANSETRON HYDROCHLORIDE

REACTIONS (13)
  - Injury [None]
  - Device dislocation [None]
  - Emotional distress [None]
  - Medication error [None]
  - Pain [None]
  - Device issue [None]
  - Abortion threatened [None]
  - Premature rupture of membranes [None]
  - Premature labour [None]
  - Psychological trauma [None]
  - Pregnancy with contraceptive device [None]
  - Uterine perforation [None]
  - Device difficult to use [None]

NARRATIVE: CASE EVENT DATE: 2011
